FAERS Safety Report 20359878 (Version 2)
Quarter: 2022Q1

REPORT INFORMATION
  Report Type: Spontaneous
  Country: US (occurrence: US)
  Receive Date: 20220121
  Receipt Date: 20220224
  Transmission Date: 20220423
  Serious: Yes (Other)
  Sender: FDA-Public Use
  Company Number: US-PFIZER INC-202200037061

PATIENT
  Age: 66 Year
  Sex: Male
  Weight: 83.91 kg

DRUGS (1)
  1. ENBREL [Suspect]
     Active Substance: ETANERCEPT
     Indication: Rheumatoid arthritis
     Dosage: 50 MG, WEEKLY (50MG SHOT PER WEEK )
     Route: 065
     Dates: end: 202012

REACTIONS (2)
  - Chronic leukaemia [Recovering/Resolving]
  - Immune system disorder [Unknown]
